FAERS Safety Report 11847138 (Version 1)
Quarter: 2015Q4

REPORT INFORMATION
  Report Type: Spontaneous
  Country: FR (occurrence: FR)
  Receive Date: 20151217
  Receipt Date: 20151217
  Transmission Date: 20160305
  Serious: Yes (Other)
  Sender: FDA-Public Use
  Company Number: FR-INCYTE CORPORATION-2015IN006558

PATIENT
  Sex: Male

DRUGS (4)
  1. HYDREA [Suspect]
     Active Substance: HYDROXYUREA
     Indication: POLYCYTHAEMIA VERA
     Dosage: 2 DF, QD, 10 DF WEEKLY
     Route: 065
     Dates: start: 200109, end: 200704
  2. HYDREA [Suspect]
     Active Substance: HYDROXYUREA
     Dosage: UNK
     Route: 065
     Dates: start: 200805, end: 201106
  3. JAKAFI [Suspect]
     Active Substance: RUXOLITINIB
     Indication: MYELOFIBROSIS
     Dosage: 1 DF, BID
     Route: 048
     Dates: start: 20120302
  4. VERCYTE [Suspect]
     Active Substance: PIPOBROMAN
     Indication: POLYCYTHAEMIA VERA
     Dosage: 25 MG
     Route: 048
     Dates: start: 200704, end: 200805

REACTIONS (2)
  - Myelofibrosis [Not Recovered/Not Resolved]
  - Actinic keratosis [Not Recovered/Not Resolved]
